FAERS Safety Report 20480748 (Version 1)
Quarter: 2022Q1

REPORT INFORMATION
  Report Type: Spontaneous
  Country: US (occurrence: US)
  Receive Date: 20220216
  Receipt Date: 20220216
  Transmission Date: 20220423
  Serious: Yes (Other)
  Sender: FDA-Public Use
  Company Number: US-INCYTE CORPORATION-2022IN001438

PATIENT

DRUGS (1)
  1. JAKAFI [Suspect]
     Active Substance: RUXOLITINIB
     Indication: Myelofibrosis
     Dosage: UNK
     Route: 065

REACTIONS (5)
  - Aplastic anaemia [Unknown]
  - Haemorrhage [Unknown]
  - Thrombocytopenia [Not Recovered/Not Resolved]
  - Injury [Unknown]
  - Accident [Unknown]
